FAERS Safety Report 17336727 (Version 2)
Quarter: 2020Q2

REPORT INFORMATION
  Report Type: Report from Study
  Country: US (occurrence: US)
  Receive Date: 20200129
  Receipt Date: 20200407
  Transmission Date: 20200713
  Serious: Yes (Other)
  Sender: FDA-Public Use
  Company Number: NVSC2020US014135

PATIENT
  Sex: Male

DRUGS (2)
  1. ENTRESTO [Suspect]
     Active Substance: SACUBITRIL\VALSARTAN
     Indication: CARDIAC FAILURE
     Dosage: 200 MG, BID
     Route: 048
     Dates: start: 201904
  2. ENTRESTO [Suspect]
     Active Substance: SACUBITRIL\VALSARTAN
     Indication: CARDIAC FAILURE CHRONIC

REACTIONS (9)
  - Cataract [Unknown]
  - Vitamin D deficiency [Unknown]
  - Pain [Not Recovered/Not Resolved]
  - Weight fluctuation [Unknown]
  - Nasal congestion [Unknown]
  - Rhinorrhoea [Unknown]
  - Onychomycosis [Unknown]
  - Fungal skin infection [Unknown]
  - Musculoskeletal pain [Not Recovered/Not Resolved]

NARRATIVE: CASE EVENT DATE: 2019
